FAERS Safety Report 6833941-6 (Version None)
Quarter: 2010Q3

REPORT INFORMATION
  Report Type: 
  Country: None (occurrence: None)
  Receive Date: 20100712
  Receipt Date: 20070406
  Transmission Date: 20110219
  Serious: No
  Sender: FDA-Public Use
  Company Number: US-PFIZER INC-2007028772

PATIENT
  Sex: Female
  Weight: 65.77 kg

DRUGS (8)
  1. CHANTIX [Suspect]
     Indication: SMOKING CESSATION THERAPY
     Dates: start: 20070214, end: 20070101
  2. CALCIUM [Concomitant]
  3. VITAMIN B COMPLEX CAP [Concomitant]
  4. VITAMIN E [Concomitant]
  5. VITAMIN D [Concomitant]
  6. VITAMIN C [Concomitant]
  7. GARLIC [Concomitant]
  8. ECHINACEA [Concomitant]

REACTIONS (3)
  - ABDOMINAL DISTENSION [None]
  - FLATULENCE [None]
  - VAGINAL HAEMORRHAGE [None]
